FAERS Safety Report 18176669 (Version 2)
Quarter: 2020Q3

REPORT INFORMATION
  Report Type: Spontaneous
  Country: TR (occurrence: TR)
  Receive Date: 20200820
  Receipt Date: 20200930
  Transmission Date: 20201103
  Serious: Yes (Life-Threatening, Hospitalization, Other)
  Sender: FDA-Public Use
  Company Number: TR-JNJFOC-20200817519

PATIENT
  Age: 32 Day
  Sex: Male
  Weight: 2.75 kg

DRUGS (7)
  1. TOPIRAMATE. [Suspect]
     Active Substance: TOPIRAMATE
     Dosage: 28TH DAY
     Route: 048
  2. AMIKACIN. [Concomitant]
     Active Substance: AMIKACIN
     Indication: SEPSIS
  3. VANCOMYCIN [Concomitant]
     Active Substance: VANCOMYCIN
     Indication: SEPSIS
  4. TOPIRAMATE. [Suspect]
     Active Substance: TOPIRAMATE
     Route: 048
  5. TOPIRAMATE. [Suspect]
     Active Substance: TOPIRAMATE
     Dosage: ON THE 29TH DAY
     Route: 048
  6. TOPIRAMATE. [Suspect]
     Active Substance: TOPIRAMATE
     Indication: EPILEPSY
     Dosage: ON 23RD DAY AFTER BIRTH
     Route: 048
  7. MEROPENEM. [Concomitant]
     Active Substance: MEROPENEM
     Indication: SEPSIS

REACTIONS (3)
  - Necrotising enterocolitis neonatal [Recovered/Resolved]
  - Product use issue [Unknown]
  - Off label use [Unknown]
